FAERS Safety Report 5622524-1 (Version None)
Quarter: 2008Q1

REPORT INFORMATION
  Report Type: 
  Country: None (occurrence: None)
  Receive Date: 20080211
  Receipt Date: 20080123
  Transmission Date: 20080703
  Serious: Yes (Death, Life-Threatening)
  Sender: FDA-Public Use
  Company Number: FR-PFIZER INC-2008011484

PATIENT
  Sex: Female

DRUGS (18)
  1. VORICONAZOLE [Suspect]
     Route: 048
  2. DILTIAZEM [Interacting]
     Dosage: DAILY DOSE:180MG
     Route: 048
  3. ZOLOFT [Interacting]
     Route: 048
     Dates: start: 20050101, end: 20071106
  4. ZOLOFT [Interacting]
     Dosage: DAILY DOSE:100MG
     Route: 048
  5. TRACLEER [Interacting]
     Route: 048
  6. IMUREL [Concomitant]
     Indication: SCLERODERMA
     Dosage: DAILY DOSE:100MG
     Dates: start: 20060601, end: 20071120
  7. CORTANCYL [Concomitant]
     Dosage: DAILY DOSE:12MG
  8. TRIATEC [Concomitant]
     Dosage: DAILY DOSE:1.25MG
     Route: 048
  9. INIPOMP [Concomitant]
     Dosage: DAILY DOSE:40MG
  10. IMOVANE [Concomitant]
     Dosage: TEXT:1 DOSE FORM
  11. FERROUS SULFATE/FOLIC ACID [Concomitant]
  12. TAZOCILLINE [Concomitant]
     Dates: start: 20071107, end: 20071101
  13. CIFLOX [Concomitant]
     Dates: start: 20071107, end: 20071101
  14. CIFLOX [Concomitant]
  15. FOSCARNET [Concomitant]
  16. TIENAM [Concomitant]
  17. AMIKLIN [Concomitant]
  18. VANCOMYCIN HYDROCHLORIDE [Concomitant]

REACTIONS (5)
  - BLOOD BICARBONATE DECREASED [None]
  - CHOLESTASIS [None]
  - DRUG INTERACTION [None]
  - METABOLIC ACIDOSIS [None]
  - THROMBOCYTOPENIA [None]
